FAERS Safety Report 7941838-3 (Version None)
Quarter: 2011Q4

REPORT INFORMATION
  Report Type: 
  Country: None (occurrence: None)
  Receive Date: 20111122
  Receipt Date: 20111122
  Transmission Date: 20120403
  Serious: No
  Sender: FDA-Public Use
  Company Number: None

PATIENT
  Age: 57 Year
  Sex: Male

DRUGS (2)
  1. PEGASYS [Suspect]
     Dosage: 180MCG QW SQ
     Route: 058
  2. RIBAVIRIN [Suspect]
     Dosage: 1200MG DAILY PO
     Route: 048

REACTIONS (2)
  - SKIN ULCER [None]
  - RASH [None]
